FAERS Safety Report 13149240 (Version 1)
Quarter: 2017Q1

REPORT INFORMATION
  Report Type: Spontaneous
  Country: GB (occurrence: GB)
  Receive Date: 20170125
  Receipt Date: 20170125
  Transmission Date: 20170428
  Serious: Yes (Life-Threatening)
  Sender: FDA-Public Use
  Company Number: GB-TEVA-731396ACC

PATIENT
  Age: 53 Year
  Sex: Male
  Weight: 108 kg

DRUGS (6)
  1. EPILIM [Concomitant]
     Active Substance: VALPROATE SODIUM
     Dosage: 3 DOSAGE FORMS DAILY;
     Dates: start: 20160921
  2. PROPRANOLOL [Concomitant]
     Active Substance: PROPRANOLOL HYDROCHLORIDE
     Dosage: 1 DOSAGE FORMS DAILY;
     Dates: start: 20160921
  3. AMOXICILLIN. [Suspect]
     Active Substance: AMOXICILLIN
     Dates: start: 20161229
  4. SIMVASTATIN. [Concomitant]
     Active Substance: SIMVASTATIN
     Dosage: 1 DOSAGE FORMS DAILY;
     Dates: start: 20160921
  5. CITALOPRAM [Concomitant]
     Active Substance: CITALOPRAM HYDROBROMIDE
     Dosage: 1 DOSAGE FORMS DAILY;
     Dates: start: 20160921
  6. FOLIC ACID. [Concomitant]
     Active Substance: FOLIC ACID
     Dosage: 1 DOSAGE FORMS DAILY;
     Dates: start: 20160921

REACTIONS (1)
  - Loss of consciousness [Recovered/Resolved]

NARRATIVE: CASE EVENT DATE: 20170104
